FAERS Safety Report 10007534 (Version 1)
Quarter: 2014Q1

REPORT INFORMATION
  Report Type: Report from Study
  Country: US (occurrence: US)
  Receive Date: 20140313
  Receipt Date: 20140313
  Transmission Date: 20141002
  Serious: Yes (Hospitalization)
  Sender: FDA-Public Use
  Company Number: US-SA-2014SA032030

PATIENT
  Age: 65 Year
  Sex: Female

DRUGS (10)
  1. DRONEDARONE [Suspect]
     Indication: PRODUCT USED FOR UNKNOWN INDICATION
     Route: 065
  2. DABIGATRAN [Interacting]
     Indication: PRODUCT USED FOR UNKNOWN INDICATION
     Route: 065
  3. NEBIVOLOL HYDROCHLORIDE [Concomitant]
  4. FLUTICASONE PROPIONATE [Concomitant]
  5. ESTRADIOL [Concomitant]
  6. KLONOPIN [Concomitant]
  7. PEPCID [Concomitant]
  8. CYMBALTA [Concomitant]
  9. OXYBUTYNIN [Concomitant]
  10. MECLIZINE [Concomitant]

REACTIONS (2)
  - Rectal haemorrhage [Unknown]
  - Drug interaction [Unknown]
